FAERS Safety Report 21968557 (Version 1)
Quarter: 2023Q1

REPORT INFORMATION
  Report Type: Spontaneous
  Country: US (occurrence: None)
  Receive Date: 20230207
  Receipt Date: 20230207
  Transmission Date: 20230418
  Serious: Yes (Life-Threatening, Hospitalization, Disabling, Other)
  Sender: FDA-Public Use
  Company Number: None

PATIENT
  Age: 30 Year
  Sex: Female

DRUGS (1)
  1. DEPO-PROVERA [Suspect]
     Active Substance: MEDROXYPROGESTERONE ACETATE

REACTIONS (14)
  - Heavy menstrual bleeding [None]
  - Ovarian cyst [None]
  - Weight increased [None]
  - Depression [None]
  - Acne [None]
  - Hormone level abnormal [None]
  - Bone density decreased [None]
  - Neuroendocrine tumour [None]
  - Carcinoid tumour [None]
  - Anaemia [None]
  - Syncope [None]
  - Impaired work ability [None]
  - Quality of life decreased [None]
  - Product complaint [None]

NARRATIVE: CASE EVENT DATE: 20090811
